FAERS Safety Report 6406554-8 (Version None)
Quarter: 2009Q4

REPORT INFORMATION
  Report Type: 
  Country: None (occurrence: None)
  Receive Date: 20091014
  Receipt Date: 20091005
  Transmission Date: 20100525
  Serious: Yes (Life-Threatening, Hospitalization)
  Sender: FDA-Public Use
  Company Number: ADR39282009

PATIENT
  Age: 84 Year
  Sex: Female

DRUGS (11)
  1. CITALOPRAM HYDROBROMIDE [Suspect]
     Indication: DEPRESSION
     Dosage: 20 MG; ORAL
     Route: 048
  2. WARFARIN SODIUM [Concomitant]
  3. CALCICHEW D3 [Concomitant]
  4. CLONAZEPAM [Concomitant]
  5. DIGOXIN [Concomitant]
  6. FERROUS SULFATE TAB [Concomitant]
  7. FOLIC ACID [Concomitant]
  8. ISOSORBIDE MONONITRATE [Concomitant]
  9. NULYTELY [Concomitant]
  10. OXYCODONE [Concomitant]
  11. ACETAMINOPHEN [Concomitant]

REACTIONS (3)
  - FALL [None]
  - HAEMORRHAGE [None]
  - INTERNATIONAL NORMALISED RATIO INCREASED [None]
